FAERS Safety Report 10397314 (Version 1)
Quarter: 2014Q3

REPORT INFORMATION
  Report Type: Spontaneous
  Country: IT (occurrence: IT)
  Receive Date: 20140820
  Receipt Date: 20140820
  Transmission Date: 20150326
  Serious: Yes (Hospitalization, Other)
  Sender: FDA-Public Use
  Company Number: PHHY2014IT100831

PATIENT
  Age: 45 Year
  Sex: Male

DRUGS (2)
  1. ALCOHOL. [Suspect]
     Active Substance: ALCOHOL
  2. METFORMIN [Suspect]
     Active Substance: METFORMIN HYDROCHLORIDE
     Indication: TYPE 2 DIABETES MELLITUS
     Dosage: 3 G, UNK

REACTIONS (13)
  - Pneumonia [Recovered/Resolved]
  - Lactic acidosis [Recovered/Resolved]
  - Loss of consciousness [Recovered/Resolved]
  - Hypotension [Recovered/Resolved]
  - Hypothermia [Recovered/Resolved]
  - Heart rate increased [Recovered/Resolved]
  - Renal function test abnormal [Unknown]
  - Alcohol abuse [Recovered/Resolved]
  - Dehydration [Recovered/Resolved]
  - Metabolic acidosis [Recovered/Resolved]
  - Apnoea [Recovered/Resolved]
  - Pallor [Recovered/Resolved]
  - Liver function test abnormal [Unknown]
